FAERS Safety Report 8333616-0 (Version None)
Quarter: 2012Q2

REPORT INFORMATION
  Report Type: 
  Country: None (occurrence: None)
  Receive Date: 20120503
  Receipt Date: 20120424
  Transmission Date: 20120825
  Serious: Yes (Hospitalization)
  Sender: FDA-Public Use
  Company Number: FR-SANOFI-AVENTIS-2012SA028387

PATIENT
  Age: 63 Year
  Sex: Male

DRUGS (1)
  1. ZOLPIDEM TARTRATE [Suspect]
     Dosage: STRENGTH; 10 MG
     Route: 048
     Dates: start: 20120326, end: 20120326

REACTIONS (3)
  - COMPARTMENT SYNDROME [None]
  - CONFUSIONAL STATE [None]
  - AGITATION [None]
